FAERS Safety Report 11033470 (Version 3)
Quarter: 2015Q4

REPORT INFORMATION
  Report Type: Spontaneous
  Country: IT (occurrence: IT)
  Receive Date: 20150415
  Receipt Date: 20151021
  Transmission Date: 20160304
  Serious: Yes (Other)
  Sender: FDA-Public Use
  Company Number: IT-ABBVIE-15P-083-1374500-00

PATIENT
  Age: 57 Year
  Sex: Female

DRUGS (5)
  1. NORVIR [Suspect]
     Active Substance: RITONAVIR
     Indication: HIV INFECTION
     Route: 048
     Dates: start: 20120721, end: 20150204
  2. LAMIVUDINE. [Concomitant]
     Active Substance: LAMIVUDINE
     Indication: HIV INFECTION
     Dosage: 300 MG
     Route: 048
     Dates: start: 20121012, end: 20150204
  3. NEXAVAR [Interacting]
     Active Substance: SORAFENIB
     Route: 048
     Dates: end: 20150711
  4. NEXAVAR [Interacting]
     Active Substance: SORAFENIB
     Indication: HEPATIC CANCER
     Route: 048
     Dates: start: 20150107, end: 20150204
  5. PREZISTA [Concomitant]
     Active Substance: DARUNAVIR ETHANOLATE
     Indication: HIV INFECTION
     Dosage: 800 MG
     Route: 048
     Dates: start: 20120721, end: 20150204

REACTIONS (6)
  - Blister [Unknown]
  - Thrombocytopenia [Recovering/Resolving]
  - Drug interaction [Recovering/Resolving]
  - Chest pain [Recovering/Resolving]
  - Asthenia [Recovering/Resolving]
  - Hepatic enzyme increased [Recovering/Resolving]

NARRATIVE: CASE EVENT DATE: 20150204
